FAERS Safety Report 10659425 (Version 2)
Quarter: 2015Q1

REPORT INFORMATION
  Report Type: Spontaneous
  Country: US (occurrence: US)
  Receive Date: 20141217
  Receipt Date: 20150129
  Transmission Date: 20150720
  Serious: No
  Sender: FDA-Public Use
  Company Number: US-BIOGENIDEC-2014BI028680

PATIENT
  Age: 75 Year
  Sex: Female

DRUGS (5)
  1. DITROPAN XL [Concomitant]
     Active Substance: OXYBUTYNIN CHLORIDE
  2. GABAPENTIN. [Concomitant]
     Active Substance: GABAPENTIN
  3. TECFIDERA [Suspect]
     Active Substance: DIMETHYL FUMARATE
     Indication: MULTIPLE SCLEROSIS
     Route: 048
     Dates: start: 201312
  4. FUROSEMIDE. [Concomitant]
     Active Substance: FUROSEMIDE
  5. POTASSIUM CHLORIDE IN DEXTROSE [Concomitant]
     Active Substance: DEXTROSE\DEXTROSE MONOHYDRATE\POTASSIUM CHLORIDE

REACTIONS (4)
  - Decreased immune responsiveness [Unknown]
  - White blood cell count decreased [Unknown]
  - Blood test abnormal [Unknown]
  - Blood count abnormal [Unknown]

NARRATIVE: CASE EVENT DATE: 2013
